FAERS Safety Report 24864566 (Version 1)
Quarter: 2025Q1

REPORT INFORMATION
  Report Type: Spontaneous
  Country: US (occurrence: US)
  Receive Date: 20250120
  Receipt Date: 20250120
  Transmission Date: 20250409
  Serious: Yes (Hospitalization)
  Sender: STRIDES
  Company Number: US-STRIDES ARCOLAB LIMITED-2025SP000895

PATIENT
  Age: 29 Year
  Sex: Female

DRUGS (2)
  1. ALPRAZOLAM [Suspect]
     Active Substance: ALPRAZOLAM
     Indication: Anxiety
     Route: 065
  2. PHENOBARBITAL [Suspect]
     Active Substance: PHENOBARBITAL
     Indication: Alcohol withdrawal syndrome
     Route: 065

REACTIONS (6)
  - Drug withdrawal syndrome [Unknown]
  - Palpitations [Unknown]
  - Tachyphrenia [Not Recovered/Not Resolved]
  - Panic reaction [Unknown]
  - Product use issue [Unknown]
  - Drug ineffective for unapproved indication [Unknown]
